FAERS Safety Report 7045695-1 (Version None)
Quarter: 2010Q4

REPORT INFORMATION
  Report Type: 
  Country: None (occurrence: None)
  Receive Date: 20101014
  Receipt Date: 20101005
  Transmission Date: 20110411
  Serious: Yes (Life-Threatening, Hospitalization)
  Sender: FDA-Public Use
  Company Number: DE-BRISTOL-MYERS SQUIBB COMPANY-14542096

PATIENT
  Age: 71 Year
  Sex: Male
  Weight: 90 kg

DRUGS (8)
  1. GLUCOPHAGE [Interacting]
     Indication: TYPE 2 DIABETES MELLITUS
     Dosage: FILM COATED TABLET
     Route: 048
     Dates: start: 20080401, end: 20080602
  2. BISOPROLOL FUMARATE [Interacting]
     Indication: HYPERTENSION
     Dosage: TABS.
     Route: 048
  3. GLIMEPIRIDE [Suspect]
     Indication: TYPE 2 DIABETES MELLITUS
     Dosage: TABS.
     Route: 048
     Dates: start: 20060101, end: 20080602
  4. ACCUZIDE [Concomitant]
     Indication: HYPERTENSION
     Dosage: 1 DOSAGE FORM = 1 TAB; FILM COATED TABLET.
     Route: 048
  5. AMLODIPINE [Concomitant]
     Indication: HYPERTENSION
     Dosage: TABS.
     Route: 048
  6. CASODEX [Concomitant]
     Indication: PROSTATE CANCER
     Dosage: FILM COATED TABLET.
     Route: 048
  7. SIMVASTATIN [Concomitant]
     Indication: HYPERLIPIDAEMIA
     Dosage: FILM COATED TABLET.
     Route: 048
  8. TAMSULOSIN [Concomitant]
     Indication: PROSTATE CANCER
     Dosage: FORM: TABLET.
     Route: 048

REACTIONS (2)
  - DRUG INTERACTION [None]
  - HYPOGLYCAEMIA [None]
